FAERS Safety Report 26037288 (Version 1)
Quarter: 2025Q4

REPORT INFORMATION
  Report Type: Spontaneous
  Country: US (occurrence: US)
  Receive Date: 20251112
  Receipt Date: 20251112
  Transmission Date: 20260118
  Serious: Yes (Other)
  Sender: SPECGX
  Company Number: US-SPECGX-T202501691

PATIENT
  Age: 5 Month
  Sex: Male

DRUGS (22)
  1. POSACONAZOLE [Suspect]
     Active Substance: POSACONAZOLE
     Indication: Antifungal prophylaxis
     Dosage: UNK
  2. POSACONAZOLE [Suspect]
     Active Substance: POSACONAZOLE
     Dosage: 64 MILLIGRAM, TID (DAYS POST-LT; 100-107)
  3. POSACONAZOLE [Suspect]
     Active Substance: POSACONAZOLE
     Dosage: 80 MILLIGRAM, TID (DAYS POST-LT; 165-228)
  4. POSACONAZOLE [Suspect]
     Active Substance: POSACONAZOLE
     Indication: Antifungal prophylaxis
     Dosage: 6 MG/KG TWICE DAILY FOR 2 DAYS (LOADING DOSE)
     Route: 042
  5. POSACONAZOLE [Suspect]
     Active Substance: POSACONAZOLE
     Dosage: 6 MG/KG INTRAVENOUSLY ONCE DAILY
     Route: 042
  6. POSACONAZOLE [Suspect]
     Active Substance: POSACONAZOLE
     Dosage: 40 MILLIGRAM, BID (DAYS POST-LT; 32)
     Route: 042
  7. POSACONAZOLE [Suspect]
     Active Substance: POSACONAZOLE
     Dosage: 40 MILLIGRAM, QD (DAYS POST-LT; 38)
     Route: 042
  8. POSACONAZOLE [Suspect]
     Active Substance: POSACONAZOLE
     Dosage: 60 MILLIGRAM, QD (DAYS POST-LT; 43-45)
     Route: 042
  9. POSACONAZOLE [Suspect]
     Active Substance: POSACONAZOLE
     Dosage: 50 MILLIGRAM, QD (DAYS POST-LT; 46-50)
     Route: 042
  10. RUXOLITINIB [Suspect]
     Active Substance: RUXOLITINIB
     Indication: Graft versus host disease in skin
     Dosage: 1.25 MILLIGRAM, BID (DAYS POST-LT; 43-50)
     Route: 065
  11. RUXOLITINIB [Suspect]
     Active Substance: RUXOLITINIB
     Dosage: 1.25 MILLIGRAM, TID (DAYS POST-LT; 68-165)
     Route: 048
  12. TACROLIMUS [Suspect]
     Active Substance: TACROLIMUS
     Indication: Graft versus host disease in skin
     Dosage: 0.6 MILLIGRAM, BID (0.1 MG/KG)
     Route: 065
  13. TACROLIMUS [Suspect]
     Active Substance: TACROLIMUS
     Dosage: 1.5 MILLIGRAM, BID (DAYS POST-LT; 27-32)
     Route: 065
  14. TACROLIMUS [Suspect]
     Active Substance: TACROLIMUS
     Dosage: 0.5 MILLIGRAM, BID (DAYS POST-LT; 38)
     Route: 065
  15. TACROLIMUS [Suspect]
     Active Substance: TACROLIMUS
     Dosage: 0.5 MILLIGRAM, QD (DAYS POST-LT; 43-46)
     Route: 065
  16. TACROLIMUS [Suspect]
     Active Substance: TACROLIMUS
     Dosage: 0.2 MILLIGRAM, QD (DAYS POST-LT; 50)
     Route: 065
  17. TACROLIMUS [Suspect]
     Active Substance: TACROLIMUS
     Dosage: 0.7 MILLIGRAM, QD (DAYS POST-LT; 68)
     Route: 065
  18. TACROLIMUS [Suspect]
     Active Substance: TACROLIMUS
     Dosage: 0.5 MILLIGRAM, QD (DAYS POST-LT; 100-107)
     Route: 065
  19. TACROLIMUS [Suspect]
     Active Substance: TACROLIMUS
     Dosage: 0.2 MILLIGRAM, BID DAYS POST-LT; 165)
     Route: 065
  20. TACROLIMUS [Suspect]
     Active Substance: TACROLIMUS
     Dosage: 0.2 MILLIGRAM, QD DAYS POST-LT; 228)
     Route: 065
  21. ALEMTUZUMAB [Suspect]
     Active Substance: ALEMTUZUMAB
     Indication: Lymphodepletion
     Dosage: 0.1 MG/KG ONCE DAILY
     Route: 058
  22. METHYLPREDNISOLONE [Concomitant]
     Active Substance: METHYLPREDNISOLONE
     Indication: Product used for unknown indication
     Dosage: UNK
     Route: 065

REACTIONS (2)
  - Bronchial hyperreactivity [Unknown]
  - Product use issue [Unknown]
